FAERS Safety Report 8610198-7 (Version None)
Quarter: 2012Q3

REPORT INFORMATION
  Report Type: 
  Country: None (occurrence: None)
  Receive Date: 20120822
  Receipt Date: 20120815
  Transmission Date: 20120928
  Serious: No
  Sender: FDA-Public Use
  Company Number: US-BIOGENIDEC-2012BI031901

PATIENT
  Age: 41 Year
  Sex: Female

DRUGS (1)
  1. AVONEX [Suspect]
     Indication: MULTIPLE SCLEROSIS
     Route: 030
     Dates: start: 20110925

REACTIONS (5)
  - DEPRESSION [None]
  - WEIGHT BEARING DIFFICULTY [None]
  - HEMIPARESIS [None]
  - IMPAIRED DRIVING ABILITY [None]
  - HYPOAESTHESIA [None]
